FAERS Safety Report 12411538 (Version 2)
Quarter: 2016Q3

REPORT INFORMATION
  Report Type: Report from Study
  Country: KZ (occurrence: KZ)
  Receive Date: 20160527
  Receipt Date: 20160729
  Transmission Date: 20161109
  Serious: Yes (Other)
  Sender: FDA-Public Use
  Company Number: KZ-BEH-2016059762

PATIENT
  Age: 4 Year
  Sex: Male
  Weight: 14.5 kg

DRUGS (1)
  1. PRIVIGEN [Suspect]
     Active Substance: HUMAN IMMUNOGLOBULIN G
     Indication: SECONDARY IMMUNODEFICIENCY
     Dosage: 50ML ADMINISTERED ON 1 DAY FROM 10:00 14:30
     Route: 041

REACTIONS (5)
  - Hypersensitivity [Unknown]
  - Toxicity to various agents [Unknown]
  - Micturition frequency decreased [Unknown]
  - Pyrexia [Unknown]
  - Body temperature increased [Unknown]
